FAERS Safety Report 5849216-8 (Version None)
Quarter: 2008Q3

REPORT INFORMATION
  Report Type: 
  Country: None (occurrence: None)
  Receive Date: 20080818
  Receipt Date: 20080818
  Transmission Date: 20090109
  Serious: Yes (Other)
  Sender: FDA-Public Use
  Company Number: None

PATIENT
  Sex: Female
  Weight: 73 kg

DRUGS (1)
  1. RITUXAN [Suspect]
     Indication: RHEUMATOID ARTHRITIS
     Dosage: 1000MG EVERY 2 WEEKS X2 IV DRIP
     Route: 041
     Dates: start: 20080424, end: 20080424

REACTIONS (2)
  - DYSPNOEA [None]
  - INFUSION RELATED REACTION [None]
